FAERS Safety Report 15617319 (Version 1)
Quarter: 2018Q4

REPORT INFORMATION
  Report Type: Spontaneous
  Country: JP (occurrence: JP)
  Receive Date: 20181114
  Receipt Date: 20181114
  Transmission Date: 20190205
  Serious: Yes (Hospitalization)
  Sender: FDA-Public Use
  Company Number: JP-PFIZER INC-2018209129

PATIENT
  Age: 60 Year
  Sex: Female

DRUGS (2)
  1. XALKORI [Suspect]
     Active Substance: CRIZOTINIB
     Dosage: 250 MG, 2X/DAY
     Route: 048
     Dates: start: 20180507
  2. XALKORI [Suspect]
     Active Substance: CRIZOTINIB
     Dosage: 500 MG, DAILY
     Route: 048

REACTIONS (6)
  - Nausea [Unknown]
  - Tachycardia [Not Recovered/Not Resolved]
  - Blood pressure decreased [Recovered/Resolved]
  - Constipation [Unknown]
  - Dysgeusia [Recovered/Resolved]
  - Dizziness postural [Unknown]

NARRATIVE: CASE EVENT DATE: 20180405
